FAERS Safety Report 7501769-X (Version None)
Quarter: 2011Q2

REPORT INFORMATION
  Report Type: 
  Country: None (occurrence: None)
  Receive Date: 20110523
  Receipt Date: 20110523
  Transmission Date: 20111010
  Serious: Yes (Hospitalization)
  Sender: FDA-Public Use
  Company Number: None

PATIENT
  Age: 80 Year
  Sex: Female
  Weight: 82.8 kg

DRUGS (7)
  1. QUINIDINE [Concomitant]
  2. DIOVAN [Concomitant]
  3. METOPROPANOLOL [Concomitant]
  4. COUMADIN [Suspect]
     Indication: MYOCARDIAL INFARCTION
     Dosage: 80 MG DAILY PO CHRONIC
  5. COUMADIN [Suspect]
     Indication: CEREBROVASCULAR ACCIDENT
     Dosage: 80 MG DAILY PO CHRONIC
  6. FOSAMAX [Concomitant]
  7. LESCOL [Concomitant]

REACTIONS (4)
  - GASTRIC ULCER [None]
  - CEREBRAL HYPOPERFUSION [None]
  - PELVIC HAEMATOMA [None]
  - INTERNATIONAL NORMALISED RATIO INCREASED [None]
